FAERS Safety Report 7964967-7 (Version None)
Quarter: 2011Q4

REPORT INFORMATION
  Report Type: 
  Country: None (occurrence: None)
  Receive Date: 20111205
  Receipt Date: 20111124
  Transmission Date: 20120403
  Serious: Yes (Disabling)
  Sender: FDA-Public Use
  Company Number: 2011MA017014

PATIENT
  Age: 38 Year
  Sex: Female

DRUGS (2)
  1. ACYCLOVIR [Concomitant]
  2. FLUOXETINE [Suspect]
     Indication: DEPRESSION
     Dosage: 20 MG;QD;PO
     Route: 048
     Dates: start: 20110613, end: 20110621

REACTIONS (5)
  - HEMIPARESIS [None]
  - ABASIA [None]
  - TREMOR [None]
  - MYOPATHY [None]
  - IMPAIRED WORK ABILITY [None]
